APPROVED DRUG PRODUCT: MIRAPEX
Active Ingredient: PRAMIPEXOLE DIHYDROCHLORIDE
Strength: 1.25MG
Dosage Form/Route: TABLET;ORAL
Application: N020667 | Product #004
Applicant: BOEHRINGER INGELHEIM
Approved: Jul 1, 1997 | RLD: No | RS: No | Type: DISCN